FAERS Safety Report 10051064 (Version 2)
Quarter: 2014Q2

REPORT INFORMATION
  Report Type: Spontaneous
  Country: US (occurrence: US)
  Receive Date: 20140401
  Receipt Date: 20140401
  Transmission Date: 20141212
  Serious: No
  Sender: FDA-Public Use
  Company Number: US-ASTRAZENECA-2009SE12588

PATIENT
  Age: 84 Year
  Sex: Female
  Weight: 77.1 kg

DRUGS (14)
  1. NEXIUM [Suspect]
     Indication: GASTROOESOPHAGEAL REFLUX DISEASE
     Route: 048
     Dates: start: 2001
  2. PRILOSEC [Suspect]
     Indication: GASTROOESOPHAGEAL REFLUX DISEASE
     Route: 048
     Dates: end: 2001
  3. CRESTOR [Suspect]
     Indication: BLOOD CHOLESTEROL INCREASED
     Route: 048
     Dates: start: 201310, end: 201310
  4. SINVASTATIN [Concomitant]
  5. DIAVAN [Concomitant]
  6. JANTOVEN [Concomitant]
  7. WARFARIN [Concomitant]
     Indication: CARDIAC DISORDER
  8. MAGNESIUM [Concomitant]
  9. GLIMEPIRIDE [Concomitant]
     Indication: DIABETES MELLITUS
  10. EXFORGE [Concomitant]
     Indication: BLOOD PRESSURE ABNORMAL
  11. VITAMIN D [Concomitant]
  12. CALCITRIOL [Concomitant]
  13. AMIODARONE [Concomitant]
     Indication: CARDIAC DISORDER
  14. FUROSEMIDE [Concomitant]
     Indication: BLOOD PRESSURE ABNORMAL

REACTIONS (11)
  - International normalised ratio increased [Unknown]
  - Diabetes mellitus [Unknown]
  - Blood cholesterol increased [Unknown]
  - Muscle spasms [Unknown]
  - Renal disorder [Unknown]
  - Hypertension [Unknown]
  - Gastrooesophageal reflux disease [Unknown]
  - Body height decreased [Unknown]
  - Vomiting [Unknown]
  - Insomnia [Unknown]
  - Drug ineffective [Unknown]
